FAERS Safety Report 5021612-0 (Version None)
Quarter: 2006Q2

REPORT INFORMATION
  Report Type: 
  Country: None (occurrence: None)
  Receive Date: 20060605
  Receipt Date: 20060605
  Transmission Date: 20061013
  Serious: Yes (Other)
  Sender: FDA-Public Use
  Company Number: US200605001093

PATIENT
  Age: 30 Year
  Sex: Female

DRUGS (2)
  1. XIGRIS [Suspect]
     Indication: SEPSIS
     Dosage: 24 UG/M2, MONTHLY (1/M), INTRAVENOUS
     Route: 042
     Dates: start: 20060502
  2. OXYGEN                   (OXYGEN) [Concomitant]

REACTIONS (3)
  - CATHETER RELATED COMPLICATION [None]
  - DEEP VEIN THROMBOSIS [None]
  - DRUG EXPOSURE DURING PREGNANCY [None]
